FAERS Safety Report 5391156-5 (Version None)
Quarter: 2007Q3

REPORT INFORMATION
  Report Type: 
  Country: None (occurrence: None)
  Receive Date: 20070719
  Receipt Date: 20070711
  Transmission Date: 20080115
  Serious: Yes (Other)
  Sender: FDA-Public Use
  Company Number: PHBS2007IT11726

PATIENT
  Age: 32 Year
  Sex: Female

DRUGS (2)
  1. CYCLOSPORINE [Suspect]
     Indication: BONE MARROW TRANSPLANT
     Route: 065
  2. PREDNISONE [Concomitant]
     Indication: BONE MARROW TRANSPLANT
     Route: 065

REACTIONS (2)
  - DIPLEGIA [None]
  - NUCLEAR MAGNETIC RESONANCE IMAGING BRAIN ABNORMAL [None]
